FAERS Safety Report 21149613 (Version 1)
Quarter: 2022Q3

REPORT INFORMATION
  Report Type: Spontaneous
  Country: CN (occurrence: CN)
  Receive Date: 20220729
  Receipt Date: 20220729
  Transmission Date: 20221027
  Serious: Yes (Other)
  Sender: FDA-Public Use
  Company Number: CN-NAPPMUNDI-GBR-2022-0100108

PATIENT
  Age: 81 Year
  Sex: Female
  Weight: 55 kg

DRUGS (1)
  1. OXYCONTIN [Suspect]
     Active Substance: OXYCODONE HYDROCHLORIDE
     Indication: Cancer pain
     Dosage: 1 TABLET, BID (TWICE DAILY)
     Route: 065
     Dates: start: 20220622, end: 20220622

REACTIONS (7)
  - Deafness [Recovering/Resolving]
  - Back pain [Recovering/Resolving]
  - Discomfort [Recovering/Resolving]
  - Nausea [Recovering/Resolving]
  - Regurgitation [Recovering/Resolving]
  - Headache [Recovering/Resolving]
  - Dizziness [Recovering/Resolving]

NARRATIVE: CASE EVENT DATE: 20220624
